FAERS Safety Report 4500371-1 (Version None)
Quarter: 2004Q3

REPORT INFORMATION
  Report Type: 
  Country: None (occurrence: None)
  Receive Date: 20040928
  Receipt Date: 20040802
  Transmission Date: 20050211
  Serious: No
  Sender: FDA-Public Use
  Company Number: 04P-163-0268721-00

PATIENT
  Sex: Female

DRUGS (2)
  1. HUMIRA [Suspect]
     Indication: RHEUMATOID ARTHRITIS
     Dosage: 2 IN 1 WK, SUBCUTANEOUS
     Route: 058
  2. STEROID INJECTION [Suspect]
     Indication: RHEUMATOID ARTHRITIS
     Dosage: INJECTION

REACTIONS (2)
  - ARTHRITIS [None]
  - CONDITION AGGRAVATED [None]
